FAERS Safety Report 5354234-2 (Version None)
Quarter: 2007Q2

REPORT INFORMATION
  Report Type: 
  Country: None (occurrence: None)
  Receive Date: 20070612
  Receipt Date: 20070531
  Transmission Date: 20071010
  Serious: No
  Sender: FDA-Public Use
  Company Number: US-ASTRAZENECA-2006UW08065

PATIENT
  Age: 408 Month
  Sex: Female

DRUGS (9)
  1. SEROQUEL [Suspect]
     Indication: DEPRESSION
     Dosage: 100 MG 50 MG
     Route: 048
     Dates: start: 20050501
  2. SEROQUEL [Suspect]
     Indication: SCHIZOPHRENIA
     Dosage: 100 MG 50 MG
     Route: 048
     Dates: start: 20050501
  3. SEROQUEL [Suspect]
     Indication: AFFECTIVE DISORDER
     Dosage: 100 MG 50 MG
     Route: 048
     Dates: start: 20050501
  4. GEODON [Concomitant]
     Dates: start: 20000101, end: 20010101
  5. RISPERDAL [Concomitant]
     Dates: start: 19980301, end: 20000201
  6. ZYPREXA [Concomitant]
     Dates: start: 19980101
  7. PROZAC [Concomitant]
  8. EFFEXOR [Concomitant]
  9. LISINOPRIL [Concomitant]

REACTIONS (1)
  - DIABETES MELLITUS [None]
